FAERS Safety Report 20368146 (Version 1)
Quarter: 2022Q1

REPORT INFORMATION
  Report Type: Other
  Country: US (occurrence: None)
  Receive Date: 20220124
  Receipt Date: 20220124
  Transmission Date: 20220423
  Serious: Yes (Other)
  Sender: FDA-Public Use
  Company Number: US-Laurus-001189

PATIENT

DRUGS (4)
  1. HYDROXYCHLOROQUINE [Suspect]
     Active Substance: HYDROXYCHLOROQUINE
     Indication: Malignant melanoma
     Dosage: 600 MG PO BID
     Route: 048
  2. DABRAFENIB [Concomitant]
     Active Substance: DABRAFENIB
     Indication: Malignant melanoma
     Dosage: 150 MG BID
     Route: 048
  3. Trametenib [Concomitant]
     Indication: Malignant melanoma
     Dosage: 2 MG QD
     Route: 048
  4. HYDROXYCHLOROQUINE [Suspect]
     Active Substance: HYDROXYCHLOROQUINE
     Indication: Malignant melanoma
     Dosage: 400 MG PO BID
     Route: 048

REACTIONS (3)
  - Retinal toxicity [Not Recovered/Not Resolved]
  - Toxicity to various agents [Unknown]
  - Product use in unapproved indication [Unknown]
